FAERS Safety Report 9729456 (Version 1)
Quarter: 2013Q4

REPORT INFORMATION
  Report Type: Spontaneous
  Country: US (occurrence: US)
  Receive Date: 20131204
  Receipt Date: 20131204
  Transmission Date: 20140711
  Serious: No
  Sender: FDA-Public Use
  Company Number: US-GILEAD-2009-0021464

PATIENT
  Sex: Female

DRUGS (8)
  1. LETAIRIS [Suspect]
     Indication: PULMONARY ARTERIAL HYPERTENSION
     Route: 048
     Dates: start: 20071214
  2. LETAIRIS [Suspect]
     Route: 048
     Dates: start: 20070920, end: 20071214
  3. REVATIO [Concomitant]
     Dates: start: 20080922
  4. DILTIAZEM [Concomitant]
     Dates: start: 20080922
  5. COZAAR [Concomitant]
     Dates: start: 20080922
  6. DEMADEX [Concomitant]
     Dates: start: 20080922
  7. LIPITOR [Concomitant]
     Dates: start: 20080922
  8. HYDROXYUREA [Concomitant]
     Dates: start: 20080922

REACTIONS (1)
  - Red blood cell count decreased [Not Recovered/Not Resolved]
